FAERS Safety Report 9236794 (Version 1)
Quarter: 2013Q2

REPORT INFORMATION
  Report Type: Spontaneous
  Country: US (occurrence: US)
  Receive Date: 20130416
  Receipt Date: 20130416
  Transmission Date: 20140414
  Serious: Yes (Other)
  Sender: FDA-Public Use
  Company Number: US-RB-035403-11

PATIENT
  Age: 23 Year
  Sex: Female

DRUGS (7)
  1. SUBOXONE FILM [Suspect]
     Indication: DRUG DEPENDENCE
     Dosage: SUBOXONE FILM
     Route: 060
     Dates: start: 20110415, end: 2011
  2. SUBOXONE FILM [Suspect]
     Dosage: SUBOXONE FILM: VARIOUS TAPERING DOSES
     Route: 060
     Dates: start: 2011, end: 201109
  3. SUBOXONE FILM [Suspect]
     Dosage: SUBOXONE FILM: VARIOUS DOSES
     Route: 060
     Dates: start: 201109, end: 20120114
  4. SUBOXONE TABLET [Suspect]
     Indication: DRUG DEPENDENCE
     Dosage: VARIOUS DOSES
     Route: 060
     Dates: start: 201109, end: 20120114
  5. SUBUTEX [Suspect]
     Indication: DRUG DEPENDENCE
     Dosage: VARIOUS DOSES
     Route: 060
     Dates: start: 201105
  6. HEROIN [Suspect]
     Indication: DRUG DEPENDENCE
     Dosage: UNKNOWN DOSAGE
     Route: 042
     Dates: start: 201105
  7. OXYCONTIN [Suspect]
     Indication: DRUG DEPENDENCE
     Dosage: UNKNOWN DOSES
     Route: 042
     Dates: start: 201105

REACTIONS (5)
  - Drug withdrawal syndrome [Recovered/Resolved]
  - Drug abuse [Not Recovered/Not Resolved]
  - Substance abuse [Unknown]
  - Exposure during pregnancy [Recovered/Resolved]
  - Foetal growth restriction [Recovered/Resolved]
